FAERS Safety Report 7938959-8 (Version None)
Quarter: 2011Q4

REPORT INFORMATION
  Report Type: 
  Country: None (occurrence: None)
  Receive Date: 20111124
  Receipt Date: 20111118
  Transmission Date: 20120403
  Serious: No
  Sender: FDA-Public Use
  Company Number: US-PFIZER INC-2011234644

PATIENT
  Sex: Female
  Weight: 58.957 kg

DRUGS (6)
  1. XANAX [Suspect]
     Indication: ANXIETY
     Dosage: 0.25 MG, AS NEEDED (UP TO 4X/DAY)
     Route: 048
  2. PREVACID [Concomitant]
     Indication: GASTROOESOPHAGEAL REFLUX DISEASE
     Dosage: 30 MG, 2X/DAY
     Route: 048
  3. XANAX [Suspect]
     Indication: INSOMNIA
  4. PRAVACHOL [Concomitant]
     Indication: BLOOD CHOLESTEROL INCREASED
     Dosage: 40 MG, DAILY
     Route: 048
  5. ASPIRIN [Concomitant]
     Dosage: 81 MG, DAILY
     Route: 048
  6. OXYCODONE HYDROCHLORIDE [Concomitant]
     Indication: PAIN
     Dosage: 5 MG, AS NEEDED (EVERY 6 HOURS)
     Route: 048

REACTIONS (1)
  - NIGHTMARE [None]
